FAERS Safety Report 5253816-6 (Version None)
Quarter: 2007Q1

REPORT INFORMATION
  Report Type: 
  Country: None (occurrence: None)
  Receive Date: 20070301
  Receipt Date: 20070221
  Transmission Date: 20070707
  Serious: Yes (Hospitalization)
  Sender: FDA-Public Use
  Company Number: JP-ABBOTT-06P-087-0352636-00

PATIENT
  Sex: Male
  Weight: 45 kg

DRUGS (7)
  1. CLARITHROMYCIN [Suspect]
     Indication: BRONCHITIS CHRONIC
     Route: 048
     Dates: start: 20060414, end: 20060424
  2. CLARITHROMYCIN [Suspect]
     Indication: MYCOBACTERIAL INFECTION
     Route: 048
     Dates: start: 20060223, end: 20060413
  3. PAZUFLOXACIN MESILATE [Concomitant]
     Indication: PNEUMONIA
     Route: 042
     Dates: start: 20060411, end: 20060413
  4. CIPROFLOXACIN [Concomitant]
     Indication: PNEUMONIA
     Route: 042
     Dates: start: 20060409, end: 20060412
  5. STREPTOMYCIN SULFATE [Concomitant]
     Indication: MYCOBACTERIAL INFECTION
     Route: 030
     Dates: start: 20060414, end: 20060609
  6. RIFAMPICIN [Concomitant]
     Indication: MYCOBACTERIAL INFECTION
     Route: 048
     Dates: start: 20060414
  7. ETHAMBUTOL HCL [Concomitant]
     Indication: MYCOBACTERIAL INFECTION
     Route: 048
     Dates: start: 20060414

REACTIONS (1)
  - PNEUMONIA [None]
